FAERS Safety Report 21518329 (Version 2)
Quarter: 2022Q4

REPORT INFORMATION
  Report Type: Spontaneous
  Country: IT (occurrence: IT)
  Receive Date: 20221028
  Receipt Date: 20221102
  Transmission Date: 20230112
  Serious: Yes (Hospitalization)
  Sender: FDA-Public Use
  Company Number: None

PATIENT
  Age: 35 Year
  Sex: Female
  Weight: 57 kg

DRUGS (1)
  1. OCRELIZUMAB [Suspect]
     Active Substance: OCRELIZUMAB
     Indication: Multiple sclerosis
     Dosage: TWO INTRAVENOUS INFUSIONS OF 300 MG EACH
     Route: 042
     Dates: start: 20220622, end: 20220706

REACTIONS (1)
  - Coronary artery dissection [Recovered/Resolved with Sequelae]

NARRATIVE: CASE EVENT DATE: 20220922
